FAERS Safety Report 8607268 (Version 2)
Quarter: 2012Q4

REPORT INFORMATION
  Report Type: 
  Country: US (occurrence: US)
  Receive Date: 20120611
  Receipt Date: 20121126
  Transmission Date: 20130627
  Serious: No
  Sender: FDA-Public Use
  Company Number: US-ASTRAZENECA-2012SE34654

PATIENT
  Age: 33 Year
  Sex: Male
  Weight: 68.9 kg

DRUGS (2)
  1. NEXIUM [Suspect]
     Route: 048
     Dates: start: 20050725, end: 201207
  2. CARTIA XT [Concomitant]
     Dates: start: 20050310

REACTIONS (4)
  - Osteoporosis [Unknown]
  - Fracture [Unknown]
  - Bone disorder [Unknown]
  - Upper limb fracture [Unknown]
